FAERS Safety Report 12081551 (Version 1)
Quarter: 2016Q1

REPORT INFORMATION
  Report Type: Report from Study
  Country: US (occurrence: US)
  Receive Date: 20160216
  Receipt Date: 20160216
  Transmission Date: 20160526
  Serious: Yes (Other)
  Sender: FDA-Public Use
  Company Number: US-ACTELION-A-NJ2015-125803

PATIENT
  Age: 80 Year
  Sex: Female

DRUGS (2)
  1. MACITENTAN [Suspect]
     Active Substance: MACITENTAN
     Indication: PULMONARY ARTERIAL HYPERTENSION
     Dosage: 10 MG, QD
     Route: 048
     Dates: start: 20140107
  2. TYVASO [Concomitant]
     Active Substance: TREPROSTINIL

REACTIONS (3)
  - Spinal operation [Unknown]
  - Dyspnoea [Unknown]
  - Back pain [Unknown]

NARRATIVE: CASE EVENT DATE: 201511
